FAERS Safety Report 16975046 (Version 1)
Quarter: 2019Q4

REPORT INFORMATION
  Report Type: Spontaneous
  Country: US (occurrence: US)
  Receive Date: 20191029
  Receipt Date: 20191029
  Transmission Date: 20200122
  Serious: No
  Sender: FDA-Public Use
  Company Number: None

PATIENT
  Age: 64 Year
  Weight: 92.25 kg

DRUGS (2)
  1. GABAPENTIN 800MG DISPENSE BY WALMART SEMINOLE OK [Suspect]
     Active Substance: GABAPENTIN
     Indication: ARTHRITIS
     Dosage: ?          QUANTITY:1 TABLET(S);?
     Route: 048
     Dates: start: 20190131
  2. LISINOPRIL. [Concomitant]
     Active Substance: LISINOPRIL

REACTIONS (2)
  - Drug ineffective [None]
  - Intentional overdose [None]

NARRATIVE: CASE EVENT DATE: 20191029
